FAERS Safety Report 23207818 (Version 1)
Quarter: 2023Q4

REPORT INFORMATION
  Report Type: Spontaneous
  Country: US (occurrence: US)
  Receive Date: 20231121
  Receipt Date: 20231121
  Transmission Date: 20240109
  Serious: No
  Sender: FDA-Public Use
  Company Number: US-drreddys-SPO/USA/23/0179598

PATIENT
  Age: 3 Year
  Sex: Female

DRUGS (2)
  1. SAPROPTERIN DIHYDROCHLORIDE [Suspect]
     Active Substance: SAPROPTERIN DIHYDROCHLORIDE
     Indication: Hyperphenylalaninaemia
     Dosage: DISSOLVE THREE 100 MG POWDER PACKETS IN 4 TO 8 OUNCES OF WATER OR APPLE JUICE AND TAKE ONCE DAILY WI
  2. SAPROPTERIN DIHYDROCHLORIDE [Suspect]
     Active Substance: SAPROPTERIN DIHYDROCHLORIDE
     Indication: Phenylketonuria

REACTIONS (1)
  - Nasopharyngitis [Unknown]
